FAERS Safety Report 5327694-0 (Version None)
Quarter: 2007Q2

REPORT INFORMATION
  Report Type: 
  Country: None (occurrence: None)
  Receive Date: 20070517
  Receipt Date: 20070514
  Transmission Date: 20071010
  Serious: Yes (Hospitalization)
  Sender: FDA-Public Use
  Company Number: CM-MERCK-0705USA01128

PATIENT
  Age: 23 Year
  Sex: Male
  Weight: 54 kg

DRUGS (1)
  1. MECTIZAN [Suspect]
     Route: 048
     Dates: start: 20070418

REACTIONS (1)
  - ENCEPHALOPATHY [None]
